FAERS Safety Report 20838815 (Version 1)
Quarter: 2022Q2

REPORT INFORMATION
  Report Type: Spontaneous
  Country: US (occurrence: US)
  Receive Date: 20220517
  Receipt Date: 20220517
  Transmission Date: 20220720
  Serious: No
  Sender: FDA-Public Use
  Company Number: US-BAYER-2022A070214

PATIENT
  Age: 86 Year
  Sex: Male

DRUGS (1)
  1. MIRALAX [Suspect]
     Active Substance: POLYETHYLENE GLYCOL 3350
     Dosage: I TAKE IT WITH A MEASURING CAP WITH 4-8 OZ COFFEE
     Route: 048
     Dates: start: 202204, end: 20220514

REACTIONS (1)
  - Faeces hard [Recovering/Resolving]

NARRATIVE: CASE EVENT DATE: 20220401
